FAERS Safety Report 6077220-6 (Version None)
Quarter: 2009Q1

REPORT INFORMATION
  Report Type: 
  Country: None (occurrence: None)
  Receive Date: 20090213
  Receipt Date: 20090205
  Transmission Date: 20090719
  Serious: Yes (Congenital Anomaly)
  Sender: FDA-Public Use
  Company Number: A0680326A

PATIENT
  Sex: Male
  Weight: 2.6 kg

DRUGS (6)
  1. PAXIL [Suspect]
     Indication: DEPRESSION
     Dosage: 20MG PER DAY
     Dates: start: 20020101, end: 20030601
  2. VITAMIN TAB [Concomitant]
  3. PROZAC [Concomitant]
     Dosage: 20MG PER DAY
     Dates: start: 20030601
  4. SEPTRA DS [Concomitant]
     Dates: start: 20030801
  5. CLARITIN [Concomitant]
  6. AMBIEN [Concomitant]

REACTIONS (3)
  - ADACTYLY [None]
  - CONGENITAL HAND MALFORMATION [None]
  - DRUG EXPOSURE DURING PREGNANCY [None]
